FAERS Safety Report 4853753-2 (Version None)
Quarter: 2005Q4

REPORT INFORMATION
  Report Type: 
  Country: None (occurrence: None)
  Receive Date: 20051212
  Receipt Date: 20051121
  Transmission Date: 20060501
  Serious: Yes (Other)
  Sender: FDA-Public Use
  Company Number: US200511002295

PATIENT
  Age: 78 Year
  Sex: Female

DRUGS (4)
  1. FORTEO [Suspect]
     Indication: OSTEOPOROSIS
     Dates: start: 20051026, end: 20051103
  2. FORTEO [Suspect]
     Indication: OSTEOPOROSIS
     Dates: start: 20051110, end: 20051112
  3. FORTEO PEN (FORTEO PEN) [Concomitant]
  4. PEN,DISPOSABLE [Concomitant]

REACTIONS (9)
  - DIZZINESS [None]
  - EUPHORIC MOOD [None]
  - FEELING ABNORMAL [None]
  - MYALGIA [None]
  - NERVOUSNESS [None]
  - PAIN [None]
  - PELVIC FRACTURE [None]
  - PHARMACEUTICAL PRODUCT COMPLAINT [None]
  - TREMOR [None]
